FAERS Safety Report 7621024-7 (Version None)
Quarter: 2011Q3

REPORT INFORMATION
  Report Type: 
  Country: None (occurrence: None)
  Receive Date: 20110719
  Receipt Date: 20110314
  Transmission Date: 20111222
  Serious: No
  Sender: FDA-Public Use
  Company Number: US-KINGPHARMUSA00001-K201100264

PATIENT
  Sex: Female

DRUGS (2)
  1. LEVOXYL [Suspect]
     Dosage: 50 MCG, UNK
     Route: 048
     Dates: end: 20100201
  2. LEVOXYL [Suspect]
     Dosage: UNK
     Route: 048
     Dates: start: 19970101

REACTIONS (5)
  - MADAROSIS [None]
  - ALOPECIA [None]
  - ORAL DISCOMFORT [None]
  - DRUG INEFFECTIVE [None]
  - HYPOTHYROIDISM [None]
